FAERS Safety Report 7477991-8 (Version None)
Quarter: 2011Q2

REPORT INFORMATION
  Report Type: 
  Country: None (occurrence: None)
  Receive Date: 20110511
  Receipt Date: 20110511
  Transmission Date: 20111010
  Serious: Yes (Other)
  Sender: FDA-Public Use
  Company Number: None

PATIENT
  Age: 66 Year
  Sex: Male
  Weight: 83.0083 kg

DRUGS (1)
  1. LEVAQUIN [Suspect]
     Dosage: 500 MG
     Dates: start: 20110424, end: 20110430

REACTIONS (5)
  - GAIT DISTURBANCE [None]
  - PAIN [None]
  - TENDON DISORDER [None]
  - MOBILITY DECREASED [None]
  - SWELLING [None]
